FAERS Safety Report 6756162-4 (Version None)
Quarter: 2010Q2

REPORT INFORMATION
  Report Type: 
  Country: None (occurrence: None)
  Receive Date: 20100603
  Receipt Date: 20100603
  Transmission Date: 20101027
  Serious: Yes (Hospitalization)
  Sender: FDA-Public Use
  Company Number: None

PATIENT
  Sex: Female
  Weight: 88.2 kg

DRUGS (12)
  1. BENDAMUSTINE 100MG VIALS CEPHALON [Suspect]
     Indication: SMALL CELL LUNG CANCER STAGE UNSPECIFIED
     Dosage: BENDAMUSTINE 196MG DAYS 1 AND 2 IV
     Route: 042
     Dates: start: 20100524, end: 20100525
  2. BENDAMUSTINE 100MG VIALS CEPHALON [Suspect]
  3. BENDAMUSTINE 100MG VIALS CEPHALON [Suspect]
  4. BENDAMUSTINE 100MG VIALS CEPHALON [Suspect]
  5. IRINOTECAN [Suspect]
     Indication: SMALL CELL LUNG CANCER STAGE UNSPECIFIED
     Dosage: IRINOTECAN 2974MG DAYS 1 IV
     Route: 042
     Dates: start: 20100524
  6. COMPAZINE [Concomitant]
  7. ATIVAN [Concomitant]
  8. REGLAN [Concomitant]
  9. ALBUTEROL [Concomitant]
  10. DARVOCET-N 100 [Concomitant]
  11. LISINOPRIL [Concomitant]
  12. OMEGA 3-6-9 [Concomitant]

REACTIONS (3)
  - DEHYDRATION [None]
  - NAUSEA [None]
  - VOMITING [None]
